FAERS Safety Report 10071627 (Version 1)
Quarter: 2014Q2

REPORT INFORMATION
  Report Type: Report from Study
  Country: US (occurrence: US)
  Receive Date: 20140411
  Receipt Date: 20140411
  Transmission Date: 20141212
  Serious: Yes (Other)
  Sender: FDA-Public Use
  Company Number: US-ROCHE-1381249

PATIENT
  Age: 63 Year
  Sex: Female

DRUGS (4)
  1. TRASTUZUMAB [Suspect]
     Indication: BREAST CANCER
     Route: 065
     Dates: start: 20130405
  2. SYNTHROID [Concomitant]
     Indication: THYROID DISORDER
  3. PERCOCET [Concomitant]
     Indication: PAIN
  4. XANAX [Concomitant]

REACTIONS (2)
  - Hip fracture [Unknown]
  - Osteoporosis [Unknown]
